FAERS Safety Report 14818441 (Version 1)
Quarter: 2018Q2

REPORT INFORMATION
  Report Type: Spontaneous
  Country: US (occurrence: US)
  Receive Date: 20180427
  Receipt Date: 20180427
  Transmission Date: 20180711
  Serious: No
  Sender: FDA-Public Use
  Company Number: US-TEVA-2018-US-865223

PATIENT

DRUGS (1)
  1. CARBIDOPA AND LEVODOPA (ACTAVIS) [Suspect]
     Active Substance: CARBIDOPA\LEVODOPA
     Dosage: 25 MG/100 MG
     Dates: start: 2017

REACTIONS (2)
  - Drug ineffective [Unknown]
  - Product substitution issue [Unknown]
